FAERS Safety Report 12564220 (Version 1)
Quarter: 2016Q3

REPORT INFORMATION
  Report Type: Spontaneous
  Country: US (occurrence: None)
  Receive Date: 20160715
  Receipt Date: 20160715
  Transmission Date: 20161109
  Serious: Yes (Death)
  Sender: FDA-Public Use
  Company Number: None

PATIENT
  Age: 72 Year
  Sex: Male

DRUGS (2)
  1. EXJADE [Suspect]
     Active Substance: DEFERASIROX
     Indication: IRON OVERLOAD
     Route: 048
     Dates: start: 20131205, end: 20160629
  2. EXJADE [Suspect]
     Active Substance: DEFERASIROX
     Route: 048
     Dates: start: 20131205, end: 20160629

REACTIONS (1)
  - Death [None]

NARRATIVE: CASE EVENT DATE: 20160629
